FAERS Safety Report 19182451 (Version 1)
Quarter: 2021Q2

REPORT INFORMATION
  Report Type: Spontaneous
  Country: FR (occurrence: FR)
  Receive Date: 20210426
  Receipt Date: 20210426
  Transmission Date: 20210717
  Serious: Yes (Hospitalization, Other)
  Sender: FDA-Public Use
  Company Number: FR-009507513-2104FRA005229

PATIENT
  Sex: Female

DRUGS (2)
  1. JANUVIA [Suspect]
     Active Substance: SITAGLIPTIN PHOSPHATE
     Dosage: UNK
     Route: 048
  2. METFORMIN [Concomitant]
     Active Substance: METFORMIN HYDROCHLORIDE
     Dosage: 1000 MILLIGRAM, TID

REACTIONS (13)
  - Decubitus ulcer [Unknown]
  - Connective tissue inflammation [Unknown]
  - Anaemia [Unknown]
  - Arthralgia [Unknown]
  - Inflammation [Unknown]
  - Respiratory disorder [Unknown]
  - Computerised tomogram abnormal [Unknown]
  - Chronic kidney disease [Recovering/Resolving]
  - Hypoglycaemia [Unknown]
  - Malnutrition [Unknown]
  - Arthritis [Unknown]
  - Neoplasm [Unknown]
  - Slow speech [Recovering/Resolving]
